FAERS Safety Report 15288119 (Version 3)
Quarter: 2022Q1

REPORT INFORMATION
  Report Type: Report from Study
  Country: US (occurrence: None)
  Receive Date: 20180817
  Receipt Date: 20220118
  Transmission Date: 20220424
  Serious: Yes (Hospitalization)
  Sender: FDA-Public Use
  Company Number: US-ROCHE-2169169

PATIENT
  Age: 50 Year
  Sex: Female
  Weight: 57.1 kg

DRUGS (2)
  1. ATEZOLIZUMAB [Suspect]
     Active Substance: ATEZOLIZUMAB
     Indication: Breast cancer
     Dosage: ON THE SAME DAY, SHE RECEIVED THE MOST RECENT DOSE OF ATEZOLIZUMAB PRIOR TO EVENT ONSET.
     Route: 042
     Dates: start: 20170911
  2. VELIPARIB [Suspect]
     Active Substance: VELIPARIB
     Indication: Breast cancer
     Dosage: ON 16/SEP/2017, SHE RECEIVED THE MOST RECENT DOSE OF VELIPARIB PRIOR TO EVENT ONSET.
     Route: 048
     Dates: start: 20170911

REACTIONS (3)
  - Headache [Unknown]
  - Seizure [Unknown]
  - Gastric haemorrhage [Unknown]

NARRATIVE: CASE EVENT DATE: 20170916
